FAERS Safety Report 9526206 (Version 1)
Quarter: 2013Q3

REPORT INFORMATION
  Report Type: Spontaneous
  Country: FR (occurrence: FR)
  Receive Date: 20130916
  Receipt Date: 20130916
  Transmission Date: 20140515
  Serious: Yes (Hospitalization)
  Sender: FDA-Public Use
  Company Number: FR-PFIZER INC-2013261788

PATIENT
  Age: 69 Year
  Sex: Male

DRUGS (4)
  1. TYGACIL [Suspect]
     Indication: ENDOCARDITIS
     Dosage: 50 MG, 2X/DAY
     Route: 042
     Dates: start: 20080411, end: 20080415
  2. ZYLORIC ^FAES^ [Suspect]
     Dosage: UNK
     Route: 048
     Dates: start: 200802, end: 20080421
  3. TIENAM [Suspect]
     Indication: ENDOCARDITIS
     Dosage: 500 MG, 2X/DAY
     Dates: end: 20080415
  4. FOSFOCINE [Suspect]
     Indication: ENDOCARDITIS
     Dosage: 4 G DAILY
     Dates: end: 20080410

REACTIONS (3)
  - Neutropenia [Recovered/Resolved]
  - Thrombocytopenia [Recovered/Resolved]
  - Anaemia [Recovered/Resolved]
